FAERS Safety Report 18422758 (Version 1)
Quarter: 2020Q4

REPORT INFORMATION
  Report Type: Spontaneous
  Country: CA (occurrence: CA)
  Receive Date: 20201023
  Receipt Date: 20201023
  Transmission Date: 20210114
  Serious: Yes (Hospitalization, Other)
  Sender: FDA-Public Use
  Company Number: CA-JNJFOC-20201025500

PATIENT
  Age: 51 Year
  Sex: Male

DRUGS (3)
  1. D-ALPHA TOCOPHEROL/FISH OIL [Concomitant]
     Active Substance: .ALPHA.-TOCOPHEROL, D-\FISH OIL
  2. PREDNISONE. [Concomitant]
     Active Substance: PREDNISONE
     Route: 065
  3. INFLIXIMAB, RECOMBINANT [Suspect]
     Active Substance: INFLIXIMAB
     Indication: CROHN^S DISEASE
     Route: 042

REACTIONS (3)
  - Bacteraemia [Unknown]
  - Condition aggravated [Unknown]
  - Pyrexia [Unknown]
